FAERS Safety Report 12353889 (Version 1)
Quarter: 2016Q2

REPORT INFORMATION
  Report Type: Spontaneous
  Country: US (occurrence: None)
  Receive Date: 20160510
  Receipt Date: 20160510
  Transmission Date: 20160815
  Serious: Yes (Death, Hospitalization)
  Sender: FDA-Public Use
  Company Number: None

PATIENT
  Age: 5 Year
  Sex: Male
  Weight: 19.8 kg

DRUGS (5)
  1. CYTARABINE. [Suspect]
     Active Substance: CYTARABINE
     Dates: end: 20160309
  2. ONCASPAR [Suspect]
     Active Substance: PEGASPARGASE
     Dosage: 1973 UNIT
     Dates: end: 20160312
  3. METHOTREXATE [Suspect]
     Active Substance: METHOTREXATE
     Dates: end: 20160316
  4. DEXAMETHASONE. [Suspect]
     Active Substance: DEXAMETHASONE
     Dates: end: 20160401
  5. VINCRISTINE SULFATE. [Suspect]
     Active Substance: VINCRISTINE SULFATE
     Dates: end: 20160330

REACTIONS (8)
  - Thalamic infarction [None]
  - Brain herniation [None]
  - Sinusitis [None]
  - Cavernous sinus thrombosis [None]
  - Cellulitis orbital [None]
  - Brain oedema [None]
  - Brain death [None]
  - Ischaemic cerebral infarction [None]

NARRATIVE: CASE EVENT DATE: 20160403
